FAERS Safety Report 19582540 (Version 1)
Quarter: 2021Q3

REPORT INFORMATION
  Report Type: Spontaneous
  Country: US (occurrence: US)
  Receive Date: 20210720
  Receipt Date: 20210720
  Transmission Date: 20211014
  Serious: Yes (Hospitalization, Disabling)
  Sender: FDA-Public Use
  Company Number: None

PATIENT
  Age: 62 Year
  Sex: Female
  Weight: 67.5 kg

DRUGS (17)
  1. FENTANYL TRANSDERMAL SYSTEM [Concomitant]
     Active Substance: FENTANYL
  2. APIXABAN [Concomitant]
     Active Substance: APIXABAN
  3. METHENAMINE HIPPURATE. [Concomitant]
     Active Substance: METHENAMINE HIPPURATE
  4. SYMBICORT [Concomitant]
     Active Substance: BUDESONIDE\FORMOTEROL FUMARATE DIHYDRATE
  5. ALBUTEROL. [Concomitant]
     Active Substance: ALBUTEROL
  6. CITRACAL [Concomitant]
     Active Substance: CALCIUM CITRATE
  7. RESTASIS [Concomitant]
     Active Substance: CYCLOSPORINE
  8. IV TOTAL PARENTERAL NUTRITION [Concomitant]
  9. METOCLOPRAMIDE HCL 10MG TAB [Suspect]
     Active Substance: METOCLOPRAMIDE HYDROCHLORIDE
     Indication: IMPAIRED GASTRIC EMPTYING
     Dosage: ?          QUANTITY:90 TABLET(S);?
     Route: 048
  10. IRON CHELATE [Concomitant]
  11. SENNA [Concomitant]
     Active Substance: SENNA LEAF\SENNOSIDES\SENNOSIDES A AND B
  12. LIDOCAINE PATCH [Concomitant]
     Active Substance: LIDOCAINE
  13. PREGABALIN. [Concomitant]
     Active Substance: PREGABALIN
  14. MIRALAX [Concomitant]
     Active Substance: POLYETHYLENE GLYCOL 3350
  15. SYNTHROID [Concomitant]
     Active Substance: LEVOTHYROXINE SODIUM
  16. OXYCODONE [Concomitant]
     Active Substance: OXYCODONE
  17. MG OXIDE [Concomitant]

REACTIONS (7)
  - Insomnia [None]
  - Tremor [None]
  - Agitation [None]
  - Akathisia [None]
  - Drug ineffective [None]
  - Anxiety [None]
  - Small intestinal obstruction [None]

NARRATIVE: CASE EVENT DATE: 20210614
